FAERS Safety Report 24175762 (Version 1)
Quarter: 2024Q3

REPORT INFORMATION
  Report Type: Spontaneous
  Country: JP (occurrence: JP)
  Receive Date: 20240805
  Receipt Date: 20240805
  Transmission Date: 20241017
  Serious: Yes (Hospitalization)
  Sender: UNKNOWN
  Company Number: JP-MTPC-MTPC2024-0016164

PATIENT
  Age: 36 Year
  Sex: Female

DRUGS (5)
  1. NOVASTAN [Suspect]
     Active Substance: ARGATROBAN
     Dosage: 20 MILLIGRAM, QD
     Route: 065
  2. NOVASTAN [Suspect]
     Active Substance: ARGATROBAN
     Indication: Cerebral infarction
     Dosage: 60 MILLIGRAM, QD
     Route: 065
  3. EDARAVONE [Suspect]
     Active Substance: EDARAVONE
     Indication: Cerebral infarction
     Dosage: 60 MILLIGRAM, QD
     Route: 065
  4. ASPIRIN [Concomitant]
     Active Substance: ASPIRIN
     Indication: Cerebral infarction
     Dosage: 100 MILLIGRAM, QD
     Route: 065
  5. CLOPIDOGREL [Concomitant]
     Active Substance: CLOPIDOGREL BISULFATE
     Indication: Cerebral infarction
     Dosage: 75 MILLIGRAM, QD
     Route: 065

REACTIONS (5)
  - Basilar artery stenosis [Unknown]
  - Hiccups [Unknown]
  - Dysphagia [Unknown]
  - Dyslalia [Unknown]
  - Paraplegia [Unknown]
